FAERS Safety Report 11862402 (Version 1)
Quarter: 2015Q4

REPORT INFORMATION
  Report Type: Spontaneous
  Country: DE (occurrence: DE)
  Receive Date: 20151223
  Receipt Date: 20151223
  Transmission Date: 20160305
  Serious: Yes (Disabling)
  Sender: FDA-Public Use
  Company Number: DE-SUN PHARMACEUTICAL INDUSTRIES LTD-2015RR-108026

PATIENT

DRUGS (2)
  1. MIRTAZAPIN [Suspect]
     Active Substance: MIRTAZAPINE
     Indication: DEPRESSION
     Dosage: UNK
     Route: 064
     Dates: start: 201402
  2. QUETIAPINE [Suspect]
     Active Substance: QUETIAPINE
     Indication: DEPRESSION
     Dosage: UNK
     Route: 064
     Dates: start: 201402

REACTIONS (3)
  - Maternal drugs affecting foetus [None]
  - Hemiparesis [Recovered/Resolved with Sequelae]
  - Gliosis [None]

NARRATIVE: CASE EVENT DATE: 2015
